FAERS Safety Report 6296171-5 (Version None)
Quarter: 2009Q3

REPORT INFORMATION
  Report Type: 
  Country: None (occurrence: None)
  Receive Date: 20090804
  Receipt Date: 20090731
  Transmission Date: 20100115
  Serious: Yes (Death)
  Sender: FDA-Public Use
  Company Number: BE-JNJFOC-20090800099

PATIENT
  Sex: Male

DRUGS (1)
  1. DURAGESIC-100 [Suspect]
     Indication: PROSTATE CANCER METASTATIC
     Dosage: 2 PATCHES OF 100 UG/HR
     Route: 062

REACTIONS (1)
  - DEATH [None]
